FAERS Safety Report 7118217-4 (Version None)
Quarter: 2010Q4

REPORT INFORMATION
  Report Type: 
  Country: None (occurrence: None)
  Receive Date: 20101123
  Receipt Date: 20101111
  Transmission Date: 20110411
  Serious: Yes (Other)
  Sender: FDA-Public Use
  Company Number: CL-JNJFOC-20101006201

PATIENT
  Sex: Female
  Weight: 69 kg

DRUGS (1)
  1. ORTHO EVRA [Suspect]
     Indication: ILL-DEFINED DISORDER
     Route: 062

REACTIONS (3)
  - DRUG EXPOSURE DURING PREGNANCY [None]
  - PLACENTAL DISORDER [None]
  - PREGNANCY WITH CONTRACEPTIVE PATCH [None]
